FAERS Safety Report 15790487 (Version 1)
Quarter: 2019Q1

REPORT INFORMATION
  Report Type: Spontaneous
  Country: US (occurrence: US)
  Receive Date: 20190104
  Receipt Date: 20190104
  Transmission Date: 20190417
  Serious: No
  Sender: FDA-Public Use
  Company Number: US-PERRIGO-18US013041

PATIENT
  Age: 74 Year
  Sex: Female
  Weight: 95.24 kg

DRUGS (1)
  1. CLINDESSE [Suspect]
     Active Substance: CLINDAMYCIN PHOSPHATE
     Indication: UTERINE INFECTION
     Dosage: 100 MG, SINGLE
     Route: 067
     Dates: start: 20181110, end: 20181110

REACTIONS (2)
  - Off label use [Recovered/Resolved]
  - Dysgeusia [Recovered/Resolved]

NARRATIVE: CASE EVENT DATE: 20181110
